FAERS Safety Report 4549642-3 (Version None)
Quarter: 2005Q1

REPORT INFORMATION
  Report Type: 
  Country: None (occurrence: None)
  Receive Date: 20050111
  Receipt Date: 20050105
  Transmission Date: 20050727
  Serious: Yes (Other)
  Sender: FDA-Public Use
  Company Number: US-GLAXOSMITHKLINE-A0539494A

PATIENT
  Sex: Female

DRUGS (2)
  1. LAMICTAL [Suspect]
     Indication: EPILEPSY
     Route: 048
     Dates: start: 20020101
  2. CARBATROL [Concomitant]

REACTIONS (5)
  - BALANCE DISORDER [None]
  - CLONIC CONVULSION [None]
  - DIZZINESS [None]
  - HYPOAESTHESIA ORAL [None]
  - STARING [None]
